FAERS Safety Report 4474108-9 (Version None)
Quarter: 2004Q4

REPORT INFORMATION
  Report Type: 
  Country: None (occurrence: None)
  Receive Date: 20041008
  Receipt Date: 20040914
  Transmission Date: 20050328
  Serious: Yes (Hospitalization)
  Sender: FDA-Public Use
  Company Number: EWC040940649

PATIENT
  Sex: Male

DRUGS (1)
  1. FORSTEO (TERIPARATIDE) [Suspect]
     Dates: start: 20040914, end: 20040914

REACTIONS (4)
  - HYPOTENSION [None]
  - IATROGENIC INJURY [None]
  - MEDICATION ERROR [None]
  - OVERDOSE [None]
